FAERS Safety Report 5036673-2 (Version None)
Quarter: 2006Q2

REPORT INFORMATION
  Report Type: 
  Country: None (occurrence: None)
  Receive Date: 20060623
  Receipt Date: 20060612
  Transmission Date: 20061013
  Serious: Yes (Life-Threatening, Hospitalization)
  Sender: FDA-Public Use
  Company Number: 2006073756

PATIENT
  Age: 68 Year
  Sex: Female
  Weight: 90 kg

DRUGS (3)
  1. LINEZOLID [Suspect]
     Indication: OSTEOMYELITIS
     Dosage: ORAL
     Route: 048
     Dates: start: 20051101, end: 20060405
  2. LINEZOLID [Suspect]
     Indication: OSTEOMYELITIS
     Dosage: INTRAVENOUS
     Route: 042
     Dates: start: 20060405, end: 20060428
  3. RIFAMPICIN [Suspect]
     Indication: OSTEOMYELITIS
     Dosage: (1 IN 1 D), INTRAVENOUS
     Route: 042
     Dates: start: 20060423, end: 20060426

REACTIONS (1)
  - RENAL FAILURE ACUTE [None]
